FAERS Safety Report 13068134 (Version 2)
Quarter: 2017Q1

REPORT INFORMATION
  Report Type: Spontaneous
  Country: US (occurrence: US)
  Receive Date: 20161228
  Receipt Date: 20170116
  Transmission Date: 20170428
  Serious: Yes (Other)
  Sender: FDA-Public Use
  Company Number: US-INCYTE CORPORATION-2016IN008190

PATIENT
  Age: 78 Year
  Sex: Male

DRUGS (1)
  1. JAKAFI [Suspect]
     Active Substance: RUXOLITINIB
     Indication: POLYCYTHAEMIA VERA
     Dosage: 10 MG, BID
     Route: 048
     Dates: start: 20161216

REACTIONS (6)
  - Agitation [Unknown]
  - Platelet count increased [Unknown]
  - Abdominal pain upper [Recovered/Resolved]
  - Aphasia [Unknown]
  - Confusional state [Unknown]
  - Family stress [Unknown]

NARRATIVE: CASE EVENT DATE: 20161218
